FAERS Safety Report 9319127 (Version 1)
Quarter: 2013Q2

REPORT INFORMATION
  Report Type: Spontaneous
  Country: AU (occurrence: AU)
  Receive Date: 20130530
  Receipt Date: 20130530
  Transmission Date: 20140414
  Serious: Yes (Disabling)
  Sender: FDA-Public Use
  Company Number: AU-ELI_LILLY_AND_COMPANY-AU201305005558

PATIENT
  Age: 52 Year
  Sex: Female
  Weight: 72 kg

DRUGS (1)
  1. CYMBALTA [Suspect]
     Indication: PAIN
     Dosage: 30 G, QD
     Route: 048
     Dates: start: 20101212, end: 20121226

REACTIONS (3)
  - Influenza like illness [Recovering/Resolving]
  - Withdrawal syndrome [Recovering/Resolving]
  - Overdose [Unknown]
